FAERS Safety Report 17902598 (Version 5)
Quarter: 2022Q3

REPORT INFORMATION
  Report Type: Spontaneous
  Country: FR (occurrence: FR)
  Receive Date: 20200616
  Receipt Date: 20220722
  Transmission Date: 20221027
  Serious: Yes (Hospitalization, Other)
  Sender: FDA-Public Use
  Company Number: FR-NOVARTISPH-PHHY2018FR132077

PATIENT
  Age: 21 Year
  Sex: Female
  Weight: 107 kg

DRUGS (4)
  1. RIVAROXABAN [Suspect]
     Active Substance: RIVAROXABAN
     Indication: Anticoagulant therapy
     Dosage: 21X 20 MG (420 MG)
     Route: 048
  2. ACETAMINOPHEN [Suspect]
     Active Substance: ACETAMINOPHEN
     Indication: Product used for unknown indication
     Dosage: 16 G
     Route: 048
  3. PROPRANOLOL [Suspect]
     Active Substance: PROPRANOLOL HYDROCHLORIDE
     Indication: Product used for unknown indication
     Dosage: 80 MG
     Route: 048
  4. VALPROMIDE [Suspect]
     Active Substance: VALPROMIDE
     Indication: Product used for unknown indication
     Dosage: 9 G
     Route: 048

REACTIONS (7)
  - Intentional overdose [Unknown]
  - Drug level increased [Recovered/Resolved]
  - Poisoning deliberate [Unknown]
  - Intentional product misuse [Unknown]
  - Suicide attempt [Unknown]
  - Toxicity to various agents [Recovered/Resolved]
  - Bradycardia [Unknown]
